FAERS Safety Report 8920509 (Version 1)
Quarter: 2012Q4

REPORT INFORMATION
  Report Type: 
  Country: ZA (occurrence: ZA)
  Receive Date: 20121122
  Receipt Date: 20121122
  Transmission Date: 20130627
  Serious: Yes (Hospitalization)
  Sender: FDA-Public Use
  Company Number: ZA-ABBOTT-12P-143-1009083-00

PATIENT
  Age: 12 Year
  Sex: Female

DRUGS (4)
  1. EPILIM [Suspect]
     Indication: CONVULSION
     Route: 048
     Dates: end: 2012
  2. EPILIM [Suspect]
     Dosage: 20mg/kg
     Route: 042
     Dates: start: 2012, end: 2012
  3. TAMIFLU [Concomitant]
     Indication: ADENOVIRUS INFECTION
     Dates: start: 2012
  4. MEROPENEM [Concomitant]
     Indication: PRODUCT USED FOR UNKNOWN INDICATION

REACTIONS (2)
  - Drug level decreased [Recovered/Resolved]
  - Convulsion [Recovered/Resolved]
